FAERS Safety Report 9916079 (Version 1)
Quarter: 2014Q1

REPORT INFORMATION
  Report Type: Spontaneous
  Country: MX (occurrence: None)
  Receive Date: 20140219
  Receipt Date: 20140219
  Transmission Date: 20141002
  Serious: Yes (Death)
  Sender: FDA-Public Use
  Company Number: CO-OR-MX-2014-015

PATIENT
  Sex: 0

DRUGS (1)
  1. PREDNISOLONE [Suspect]

REACTIONS (1)
  - Hepatorenal syndrome [None]
